FAERS Safety Report 17464082 (Version 1)
Quarter: 2020Q1

REPORT INFORMATION
  Report Type: Spontaneous
  Country: US (occurrence: US)
  Receive Date: 20200226
  Receipt Date: 20200226
  Transmission Date: 20200409
  Serious: No
  Sender: FDA-Public Use
  Company Number: US-MERZ PHARMACEUTICALS GMBH-20-00418

PATIENT
  Age: 57 Year
  Sex: Female

DRUGS (1)
  1. XEOMIN [Suspect]
     Active Substance: INCOBOTULINUMTOXINA
     Indication: TORTICOLLIS
     Route: 058
     Dates: start: 201907

REACTIONS (2)
  - Headache [Unknown]
  - Incorrect route of product administration [Unknown]

NARRATIVE: CASE EVENT DATE: 201907
